FAERS Safety Report 9185894 (Version 2)
Quarter: 2013Q2

REPORT INFORMATION
  Report Type: Spontaneous
  Country: US (occurrence: US)
  Receive Date: 20130325
  Receipt Date: 20130429
  Transmission Date: 20140414
  Serious: Yes (Hospitalization, Other)
  Sender: FDA-Public Use
  Company Number: US-AMGEN-USASP2013018912

PATIENT
  Sex: Female
  Weight: 53.52 kg

DRUGS (3)
  1. PROLIA [Suspect]
     Indication: PRODUCT USED FOR UNKNOWN INDICATION
     Dosage: 60 MG, Q6MO
     Route: 058
     Dates: start: 20120229, end: 201209
  2. SIMVASTATIN [Concomitant]
     Route: 048
  3. CELECOXIB [Concomitant]
     Route: 048

REACTIONS (1)
  - Breast cancer [Recovering/Resolving]
